FAERS Safety Report 18964164 (Version 1)
Quarter: 2021Q1

REPORT INFORMATION
  Report Type: Spontaneous
  Country: US (occurrence: US)
  Receive Date: 20210303
  Receipt Date: 20210303
  Transmission Date: 20210420
  Serious: No
  Sender: FDA-Public Use
  Company Number: US-AMNEAL PHARMACEUTICALS-2020-AMRX-02245

PATIENT
  Age: 81 Year
  Sex: Female
  Weight: 61.22 kg

DRUGS (1)
  1. RYTARY [Suspect]
     Active Substance: CARBIDOPA\LEVODOPA
     Indication: PARKINSON^S DISEASE
     Dosage: 3 CAPSULES, TID, 7AM?12NN?5PM
     Route: 048
     Dates: start: 20200715

REACTIONS (5)
  - Therapeutic response shortened [Not Recovered/Not Resolved]
  - Product dose omission issue [Unknown]
  - Feeling abnormal [Unknown]
  - Dizziness [Unknown]
  - Tremor [Not Recovered/Not Resolved]

NARRATIVE: CASE EVENT DATE: 20200715
